FAERS Safety Report 8247444 (Version 2)
Quarter: 2014Q1

REPORT INFORMATION
  Report Type: Spontaneous
  Country: US (occurrence: US)
  Receive Date: 20111116
  Receipt Date: 20140129
  Transmission Date: 20141002
  Serious: Yes (Hospitalization)
  Sender: FDA-Public Use
  Company Number: US-GLAXOSMITHKLINE-A0953246A

PATIENT
  Age: 60 Year
  Sex: Female
  Weight: 50.7 kg

DRUGS (4)
  1. FLOLAN [Suspect]
     Indication: PULMONARY ARTERIAL HYPERTENSION
     Dosage: 22NGKM UNKNOWN
     Route: 065
     Dates: start: 20070202
  2. OXYGEN [Concomitant]
  3. DIGOXIN [Concomitant]
  4. POTASSIUM [Concomitant]

REACTIONS (1)
  - Ventricular tachycardia [Recovered/Resolved]
